FAERS Safety Report 10584374 (Version 16)
Quarter: 2017Q2

REPORT INFORMATION
  Report Type: Report from Study
  Country: AT (occurrence: AT)
  Receive Date: 20141114
  Receipt Date: 20170606
  Transmission Date: 20170829
  Serious: Yes (Hospitalization, Other)
  Sender: FDA-Public Use
  Company Number: AT-INCYTE CORPORATION-2014IN002099

PATIENT

DRUGS (4)
  1. JAKAVI [Suspect]
     Active Substance: RUXOLITINIB
     Dosage: 15 MG, BID
     Route: 048
     Dates: start: 20140617, end: 20140729
  2. JAKAVI [Suspect]
     Active Substance: RUXOLITINIB
     Dosage: 20 MG, BID
     Route: 048
     Dates: start: 20140203, end: 20140617
  3. JAKAVI [Suspect]
     Active Substance: RUXOLITINIB
     Indication: MYELOFIBROSIS
     Dosage: 30 MG, QD
     Route: 048
     Dates: start: 20121129, end: 20140203
  4. JAKAVI [Suspect]
     Active Substance: RUXOLITINIB
     Dosage: 10 MG, BID
     Route: 048
     Dates: start: 20140729

REACTIONS (43)
  - Aquagenic pruritus [Unknown]
  - Vomiting [Unknown]
  - Hepatotoxicity [Recovered/Resolved]
  - Gastric infection [Unknown]
  - Splenomegaly [Unknown]
  - Lymph node pain [Unknown]
  - Haemangioma [Unknown]
  - Red blood cell count decreased [Unknown]
  - Paronychia [Recovered/Resolved]
  - Haemangioma of bone [Unknown]
  - Red blood cell sedimentation rate increased [Unknown]
  - Blood uric acid increased [Unknown]
  - Abdominal pain [Unknown]
  - Osteochondrosis [Unknown]
  - Renal atrophy [Unknown]
  - Nephrosclerosis [Unknown]
  - Pruritus [Not Recovered/Not Resolved]
  - Lymphocyte count increased [Unknown]
  - Hepatotoxicity [Not Recovered/Not Resolved]
  - Adrenal insufficiency [Unknown]
  - Biliary dilatation [Unknown]
  - Fatigue [Not Recovered/Not Resolved]
  - Anisocytosis [Unknown]
  - Red cell distribution width increased [Unknown]
  - Haemoglobin decreased [Unknown]
  - Blood pressure systolic increased [Unknown]
  - Diverticulum intestinal [Unknown]
  - Abdominal discomfort [Unknown]
  - Blood lactate dehydrogenase increased [Unknown]
  - General physical health deterioration [Unknown]
  - Haematocrit decreased [Unknown]
  - Chest pain [Unknown]
  - Mean platelet volume increased [Unknown]
  - Blood urea increased [Unknown]
  - Pyrexia [Unknown]
  - Pyelocaliectasis [Unknown]
  - White blood cell count increased [Unknown]
  - Urticaria [Unknown]
  - Lymphadenopathy [Unknown]
  - Blood creatinine increased [Unknown]
  - Glomerular filtration rate decreased [Unknown]
  - Anaemia [Recovered/Resolved]
  - Platelet count decreased [Unknown]

NARRATIVE: CASE EVENT DATE: 20130108
